FAERS Safety Report 25361946 (Version 3)
Quarter: 2025Q3

REPORT INFORMATION
  Report Type: Spontaneous
  Country: US (occurrence: US)
  Receive Date: 20250527
  Receipt Date: 20250901
  Transmission Date: 20251020
  Serious: Yes (Hospitalization, Other)
  Sender: Y-MABS THERAPEUTICS
  Company Number: US-Y-MABS THERAPEUTICS, INC.-SPO2025-US-002024

PATIENT

DRUGS (1)
  1. DANYELZA [Suspect]
     Active Substance: NAXITAMAB-GQGK
     Indication: Neuroblastoma
     Route: 042

REACTIONS (3)
  - Bronchospasm [Recovered/Resolved]
  - Urinary retention [Unknown]
  - Hypertension [Unknown]

NARRATIVE: CASE EVENT DATE: 20250521
